FAERS Safety Report 8078019-1 (Version None)
Quarter: 2012Q1

REPORT INFORMATION
  Report Type: 
  Country: None (occurrence: None)
  Receive Date: 20120127
  Receipt Date: 20110318
  Transmission Date: 20120608
  Serious: No
  Sender: FDA-Public Use
  Company Number: US-ABBOTT-10P-163-0681890-00

PATIENT
  Sex: Female
  Weight: 18.16 kg

DRUGS (7)
  1. METHOTREXATE [Suspect]
     Indication: PRODUCT USED FOR UNKNOWN INDICATION
     Dates: start: 20110201
  2. DILATING DROPS [Concomitant]
     Indication: UVEITIS
     Route: 031
  3. UNKNOWN EYE DROPS [Concomitant]
     Indication: PRODUCT USED FOR UNKNOWN INDICATION
  4. HUMIRA [Suspect]
     Indication: UVEITIS
     Dates: start: 20110101
  5. HUMIRA [Suspect]
     Indication: PSORIATIC ARTHROPATHY
     Dates: start: 20090101, end: 20110101
  6. PRED FORTE [Concomitant]
     Indication: UVEITIS
     Route: 031
  7. FOLIC ACID [Concomitant]
     Indication: PRODUCT USED FOR UNKNOWN INDICATION
     Dates: start: 20110201

REACTIONS (5)
  - NEGATIVE THOUGHTS [None]
  - UVEITIS [None]
  - VISUAL IMPAIRMENT [None]
  - UNEVALUABLE EVENT [None]
  - ABNORMAL DREAMS [None]
